FAERS Safety Report 9715994 (Version 1)
Quarter: 2013Q4

REPORT INFORMATION
  Report Type: Spontaneous
  Country: BR (occurrence: BR)
  Receive Date: 20131127
  Receipt Date: 20131127
  Transmission Date: 20140711
  Serious: Yes (Death)
  Sender: FDA-Public Use
  Company Number: BR-B.I. PHARMACEUTICALS,INC./RIDGEFIELD-2013-BI-39114BR

PATIENT
  Age: 83 Year
  Sex: Male
  Weight: 60 kg

DRUGS (4)
  1. MICARDIS [Suspect]
     Indication: HYPERTENSION
     Dosage: 40 MG
     Route: 048
  2. CEBRELIN [Concomitant]
     Indication: NERVOUS SYSTEM DISORDER
  3. KETOSERIL [Concomitant]
     Indication: RENAL DISORDER
  4. ALOIS [Concomitant]
     Indication: NERVOUS SYSTEM DISORDER

REACTIONS (1)
  - Open fracture [Fatal]
